FAERS Safety Report 6459908-8 (Version None)
Quarter: 2009Q4

REPORT INFORMATION
  Report Type: 
  Country: None (occurrence: None)
  Receive Date: 20091129
  Receipt Date: 20091116
  Transmission Date: 20100525
  Serious: Yes (Hospitalization, Other)
  Sender: FDA-Public Use
  Company Number: PHHY2009GB43097

PATIENT
  Sex: Female

DRUGS (9)
  1. EXJADE [Suspect]
     Indication: SICKLE CELL ANAEMIA
     Dosage: UNK
     Dates: start: 20090806, end: 20090928
  2. EXJADE [Suspect]
     Indication: IRON OVERLOAD
  3. PARACETAMOL [Concomitant]
     Dosage: UNK
  4. DESFERAL [Concomitant]
     Dosage: UNK
  5. DIHYDROCODEINE BITARTRATE INJ [Concomitant]
     Dosage: UNK
  6. PENICILLIN VK [Concomitant]
     Dosage: UNK
  7. AMOXICILLIN [Concomitant]
  8. ERYTHROMYCIN [Concomitant]
  9. OMEPRAZOLE [Concomitant]

REACTIONS (9)
  - CHEST PAIN [None]
  - EMOTIONAL DISTRESS [None]
  - GASTROINTESTINAL ULCER [None]
  - LOWER RESPIRATORY TRACT INFECTION [None]
  - MALAISE [None]
  - MUSCULOSKELETAL CHEST PAIN [None]
  - RECTAL HAEMORRHAGE [None]
  - SICKLE CELL ANAEMIA WITH CRISIS [None]
  - TREATMENT NONCOMPLIANCE [None]
